FAERS Safety Report 6139386-9 (Version None)
Quarter: 2009Q2

REPORT INFORMATION
  Report Type: 
  Country: None (occurrence: None)
  Receive Date: 20090401
  Receipt Date: 20090324
  Transmission Date: 20091009
  Serious: Yes (Death)
  Sender: FDA-Public Use
  Company Number: US-ROCHE-624092

PATIENT
  Sex: Female
  Weight: 90.7 kg

DRUGS (2)
  1. CAPECITABINE [Suspect]
     Indication: BREAST CANCER
     Dosage: ON DAY 1 - 14 EVERY 3 WEEKS
     Route: 048
     Dates: start: 20080816, end: 20080823
  2. SUTENT [Suspect]
     Indication: BREAST CANCER
     Route: 048
     Dates: start: 20080816, end: 20080823

REACTIONS (1)
  - DEATH [None]
